FAERS Safety Report 7388320-2 (Version None)
Quarter: 2011Q2

REPORT INFORMATION
  Report Type: 
  Country: None (occurrence: None)
  Receive Date: 20110401
  Receipt Date: 20110324
  Transmission Date: 20111010
  Serious: Yes (Other)
  Sender: FDA-Public Use
  Company Number: SE-AMGEN-SWESP2010007643

PATIENT
  Age: 55 Year
  Sex: Male

DRUGS (9)
  1. ENBREL [Suspect]
     Indication: PSORIATIC ARTHROPATHY
     Dosage: 50 MG, WEEKLY
     Route: 058
     Dates: start: 19990906, end: 20101001
  2. PREDNISOLON                        /00016201/ [Concomitant]
     Indication: PSORIATIC ARTHROPATHY
     Dosage: 5 MG, 1X/DAY
  3. METHOTREXATE [Concomitant]
     Indication: PSORIATIC ARTHROPATHY
     Dosage: 15 MG, QWK
     Route: 048
     Dates: start: 19940101, end: 20101001
  4. PREDNISOLON                        /00016201/ [Concomitant]
     Indication: ANKYLOSING SPONDYLITIS
  5. PRONAXEN [Concomitant]
     Indication: ANKYLOSING SPONDYLITIS
  6. ENBREL [Suspect]
     Indication: ANKYLOSING SPONDYLITIS
     Dosage: 50 MG, QWK
     Route: 058
     Dates: start: 20101226
  7. METHOTREXATE [Concomitant]
     Indication: ANKYLOSING SPONDYLITIS
  8. ATACAND [Concomitant]
     Indication: HYPERTENSION
     Dosage: 4 MG, 1X/DAY
     Dates: start: 20070101
  9. PRONAXEN [Concomitant]
     Indication: PSORIATIC ARTHROPATHY
     Dosage: 250 MG, 2X/DAY
     Route: 048
     Dates: start: 19940101

REACTIONS (4)
  - ERECTILE DYSFUNCTION [None]
  - LIBIDO DECREASED [None]
  - MICTURITION URGENCY [None]
  - TOOTH INFECTION [None]
